FAERS Safety Report 8633940 (Version 6)
Quarter: 2012Q4

REPORT INFORMATION
  Report Type: 
  Country: NZ (occurrence: NZ)
  Receive Date: 20120626
  Receipt Date: 20121113
  Transmission Date: 20130627
  Serious: Yes (Death, Hospitalization, Other)
  Sender: FDA-Public Use
  Company Number: NZ-AMGEN-NZLSP2012038568

PATIENT
  Age: 68 Year
  Sex: Male
  Weight: 123 kg

DRUGS (1)
  1. XGEVA [Suspect]
     Indication: PROSTATE CANCER
     Dosage: 120 mg, q4wk
     Route: 058
     Dates: start: 20080616, end: 20120524

REACTIONS (11)
  - Urinary tract infection [Unknown]
  - Abdominal pain [Unknown]
  - Lower respiratory tract infection [Unknown]
  - Septic shock [Unknown]
  - Hypotension [Unknown]
  - Pyrexia [Unknown]
  - Vomiting [Unknown]
  - Diarrhoea [Unknown]
  - Tongue ulceration [Recovered/Resolved]
  - Osteonecrosis of jaw [Not Recovered/Not Resolved]
  - Urosepsis [Fatal]
